FAERS Safety Report 17651644 (Version 2)
Quarter: 2020Q2

REPORT INFORMATION
  Report Type: Report from Study
  Country: FR (occurrence: FR)
  Receive Date: 20200409
  Receipt Date: 20200415
  Transmission Date: 20200713
  Serious: Yes (Death, Hospitalization)
  Sender: FDA-Public Use
  Company Number: FR-EMD SERONO-9155856

PATIENT
  Age: 38 Year
  Sex: Male
  Weight: 130 kg

DRUGS (11)
  1. ATRACURIUM [Concomitant]
     Active Substance: ATRACURIUM
     Indication: NEUROMUSCULAR BLOCKING THERAPY
     Dosage: 400 (UNSPECIFED UNITS)
     Dates: start: 20200408, end: 20200409
  2. VANCOMYCINE [Concomitant]
     Active Substance: VANCOMYCIN
     Indication: SHOCK
     Dates: start: 20200408, end: 20200408
  3. LANSOPRAZOLE. [Concomitant]
     Active Substance: LANSOPRAZOLE
     Indication: PROPHYLAXIS AGAINST GASTROINTESTINAL ULCER
     Dates: start: 20200406, end: 20200408
  4. INTERFERON BETA-1A [Suspect]
     Active Substance: INTERFERON BETA-1A
     Indication: CORONAVIRUS INFECTION
     Route: 058
     Dates: start: 20200329, end: 20200331
  5. LOPINAVIR/RITONAVIR [Suspect]
     Active Substance: LOPINAVIR\RITONAVIR
     Indication: CORONAVIRUS INFECTION
     Dosage: DAILY DOSE: 800/200.
     Dates: start: 20200329, end: 20200331
  6. LOPINAVIR/RITONAVIR [Suspect]
     Active Substance: LOPINAVIR\RITONAVIR
     Dosage: DAILY DOSE: 400/100.
     Dates: start: 20200407, end: 20200407
  7. MIDAZOLAM. [Concomitant]
     Active Substance: MIDAZOLAM
     Indication: SEDATION
     Dates: start: 20200329, end: 20200409
  8. NORADRENALINE                      /00127501/ [Concomitant]
     Active Substance: NOREPINEPHRINE
     Indication: SHOCK
     Route: 042
     Dates: start: 20200408, end: 20200409
  9. PIPERACILLIN AND TAZOBACTAM [Concomitant]
     Active Substance: PIPERACILLIN SODIUM\TAZOBACTAM SODIUM
     Indication: SHOCK
     Dosage: 16 G
     Dates: start: 20200408, end: 20200408
  10. CISATRACURIUM. [Concomitant]
     Active Substance: CISATRACURIUM
     Indication: NEUROMUSCULAR BLOCKING THERAPY
     Dates: start: 20200402, end: 20200409
  11. SUFENTANIL [Concomitant]
     Active Substance: SUFENTANIL
     Indication: SEDATION
     Dosage: 485 (UNSPECIFIED UNITS)
     Dates: start: 20200329, end: 20200409

REACTIONS (2)
  - Intestinal ischaemia [Fatal]
  - Acute kidney injury [Not Recovered/Not Resolved]

NARRATIVE: CASE EVENT DATE: 20200329
